FAERS Safety Report 7147809-1 (Version None)
Quarter: 2010Q4

REPORT INFORMATION
  Report Type: 
  Country: None (occurrence: None)
  Receive Date: 20101207
  Receipt Date: 20101207
  Transmission Date: 20110411
  Serious: Yes (Life-Threatening)
  Sender: FDA-Public Use
  Company Number: None

PATIENT
  Age: 38 Year
  Sex: Male
  Weight: 91.2 kg

DRUGS (5)
  1. TEGRETOL [Suspect]
     Dosage: 300MG BID PO
     Route: 048
  2. CLONAZEPAM [Concomitant]
  3. PHENOBARBITAL [Concomitant]
  4. DARVOCET [Concomitant]
  5. CARDIZEM ER [Concomitant]

REACTIONS (5)
  - ATRIAL FIBRILLATION [None]
  - CHEST PAIN [None]
  - DYSPNOEA [None]
  - MUSCULAR WEAKNESS [None]
  - PALPITATIONS [None]
